FAERS Safety Report 17873353 (Version 2)
Quarter: 2020Q2

REPORT INFORMATION
  Report Type: Spontaneous
  Country: PT (occurrence: PT)
  Receive Date: 20200608
  Receipt Date: 20200624
  Transmission Date: 20200714
  Serious: Yes (Disabling)
  Sender: FDA-Public Use
  Company Number: PT-AUROBINDO-AUR-APL-2020-024644

PATIENT
  Age: 50 Year
  Sex: Female

DRUGS (1)
  1. ALPRAZOLAM. [Suspect]
     Active Substance: ALPRAZOLAM
     Indication: PSYCHIATRIC DECOMPENSATION
     Dosage: 0.5 MILLIGRAM, TWO TIMES A DAY
     Route: 065

REACTIONS (3)
  - Psychomotor retardation [Unknown]
  - Off label use [Unknown]
  - Psychomotor skills impaired [Recovered/Resolved]

NARRATIVE: CASE EVENT DATE: 20170621
